FAERS Safety Report 12208148 (Version 1)
Quarter: 2016Q1

REPORT INFORMATION
  Report Type: Spontaneous
  Country: US (occurrence: US)
  Receive Date: 20160324
  Receipt Date: 20160324
  Transmission Date: 20160526
  Serious: No
  Sender: FDA-Public Use
  Company Number: US-ELI_LILLY_AND_COMPANY-US201603008487

PATIENT
  Sex: Female

DRUGS (1)
  1. AXIRON [Suspect]
     Active Substance: TESTOSTERONE

REACTIONS (3)
  - Accidental exposure to product [Not Recovered/Not Resolved]
  - Alopecia [Not Recovered/Not Resolved]
  - Blood testosterone increased [Not Recovered/Not Resolved]
